FAERS Safety Report 9434547 (Version 1)
Quarter: 2013Q3

REPORT INFORMATION
  Report Type: Spontaneous
  Country: US (occurrence: US)
  Receive Date: 20130801
  Receipt Date: 20130801
  Transmission Date: 20140515
  Serious: Yes (Other)
  Sender: FDA-Public Use
  Company Number: US-PFIZER INC-2013219957

PATIENT
  Age: 90 Year
  Sex: Male
  Weight: 90.7 kg

DRUGS (2)
  1. VIAGRA [Suspect]
     Indication: PENIS DISORDER
     Dosage: 600 MG, UNK
     Dates: start: 201306
  2. MULTIVITAMINS W/MINERALS [Concomitant]
     Indication: MENTAL RETARDATION
     Dosage: UNK

REACTIONS (3)
  - Incorrect dose administered [Unknown]
  - Erection increased [Not Recovered/Not Resolved]
  - Penile pain [Not Recovered/Not Resolved]
